FAERS Safety Report 5268797-9 (Version None)
Quarter: 2007Q1

REPORT INFORMATION
  Report Type: 
  Country: None (occurrence: None)
  Receive Date: 20070314
  Receipt Date: 20070302
  Transmission Date: 20070707
  Serious: No
  Sender: FDA-Public Use
  Company Number: 2006-152206-NL

PATIENT
  Age: 35 Year
  Sex: Female
  Weight: 73.5 kg

DRUGS (3)
  1. NUVARING [Suspect]
     Indication: CONTRACEPTION
     Dosage: NI VAGINAL, 3 WEEKS IN, 1 WEEK OUT
     Dates: start: 20061106
  2. ZOCOR [Concomitant]
  3. PAXIL [Concomitant]

REACTIONS (3)
  - HEADACHE [None]
  - NIGHT BLINDNESS [None]
  - VISION BLURRED [None]
